FAERS Safety Report 7557945-3 (Version None)
Quarter: 2011Q2

REPORT INFORMATION
  Report Type: 
  Country: None (occurrence: None)
  Receive Date: 20110620
  Receipt Date: 20110610
  Transmission Date: 20111010
  Serious: Yes (Other)
  Sender: FDA-Public Use
  Company Number: B0726925A

PATIENT
  Sex: Male

DRUGS (2)
  1. NARATRIPTAN [Suspect]
     Dosage: 15MG PER DAY
     Route: 065
  2. ALMOTRIPTAN MALATE [Suspect]
     Dosage: 10TAB PER DAY
     Route: 065

REACTIONS (4)
  - ALCOHOL POISONING [None]
  - OVERDOSE [None]
  - SLUGGISHNESS [None]
  - INTENTIONAL DRUG MISUSE [None]
